FAERS Safety Report 5641860-6 (Version None)
Quarter: 2008Q1

REPORT INFORMATION
  Report Type: 
  Country: None (occurrence: None)
  Receive Date: 20080227
  Receipt Date: 20080225
  Transmission Date: 20080703
  Serious: Yes (Other)
  Sender: FDA-Public Use
  Company Number: JP-BOEHRINGER INGELHEIM GMBH, GERMANY-2007-BP-21995NB

PATIENT
  Sex: Male
  Weight: 66 kg

DRUGS (1)
  1. MICARDIS [Suspect]
     Indication: HYPERTENSION
     Route: 048
     Dates: start: 20060624, end: 20070126

REACTIONS (3)
  - DRUG INEFFECTIVE [None]
  - GASTRIC CANCER [None]
  - WEIGHT DECREASED [None]
